FAERS Safety Report 26169637 (Version 2)
Quarter: 2025Q4

REPORT INFORMATION
  Report Type: Spontaneous
  Country: US (occurrence: US)
  Receive Date: 20251217
  Receipt Date: 20251222
  Transmission Date: 20260117
  Serious: Yes (Life-Threatening, Hospitalization, Other)
  Sender: CIPLA
  Company Number: US-CIPLA (EU) LIMITED-2025US15582

PATIENT

DRUGS (1)
  1. AMLODIPINE [Suspect]
     Active Substance: AMLODIPINE BESYLATE
     Indication: Headache
     Dosage: UNK (EIGHT PILLS)
     Route: 048

REACTIONS (5)
  - Multiple organ dysfunction syndrome [Unknown]
  - Thrombosis [Unknown]
  - Accidental overdose [Unknown]
  - Wrong product administered [Unknown]
  - Toxicity to various agents [Unknown]
